APPROVED DRUG PRODUCT: PBZ-SR
Active Ingredient: TRIPELENNAMINE HYDROCHLORIDE
Strength: 100MG
Dosage Form/Route: TABLET, EXTENDED RELEASE;ORAL
Application: N010533 | Product #001
Applicant: NOVARTIS PHARMACEUTICALS CORP
Approved: Approved Prior to Jan 1, 1982 | RLD: No | RS: No | Type: DISCN